FAERS Safety Report 25543481 (Version 3)
Quarter: 2025Q3

REPORT INFORMATION
  Report Type: Spontaneous
  Country: JP (occurrence: JP)
  Receive Date: 20250711
  Receipt Date: 20250812
  Transmission Date: 20251021
  Serious: Yes (Hospitalization, Other)
  Sender: ASTELLAS
  Company Number: JP-ASTELLAS-2025-AER-037574

PATIENT
  Age: 7 Decade
  Sex: Female

DRUGS (2)
  1. VYLOY [Suspect]
     Active Substance: ZOLBETUXIMAB-CLZB
     Indication: Gastric cancer
     Route: 042
     Dates: start: 20250604, end: 20250625
  2. CAPECITABINE [Concomitant]
     Active Substance: CAPECITABINE
     Indication: Product used for unknown indication
     Route: 065
     Dates: start: 20250604, end: 20250625

REACTIONS (1)
  - Bile duct stenosis [Recovered/Resolved]

NARRATIVE: CASE EVENT DATE: 20250708
